FAERS Safety Report 8290607-6 (Version None)
Quarter: 2012Q2

REPORT INFORMATION
  Report Type: 
  Country: None (occurrence: None)
  Receive Date: 20120417
  Receipt Date: 20110510
  Transmission Date: 20120825
  Serious: No
  Sender: FDA-Public Use
  Company Number: US-ASTRAZENECA-2010SE04927

PATIENT
  Age: 83 Year
  Sex: Male
  Weight: 53.5 kg

DRUGS (2)
  1. M.V.I. [Concomitant]
  2. NEXIUM [Suspect]
     Indication: DYSPEPSIA
     Route: 048
     Dates: start: 20100127

REACTIONS (8)
  - LETHARGY [None]
  - DIZZINESS [None]
  - DRY MOUTH [None]
  - ABDOMINAL PAIN [None]
  - CONSTIPATION [None]
  - DIARRHOEA [None]
  - DRUG INEFFECTIVE [None]
  - ARTHRITIS [None]
